FAERS Safety Report 6399062-4 (Version None)
Quarter: 2009Q4

REPORT INFORMATION
  Report Type: 
  Country: None (occurrence: None)
  Receive Date: 20091008
  Receipt Date: 20080924
  Transmission Date: 20100525
  Serious: Yes (Hospitalization)
  Sender: FDA-Public Use
  Company Number: 2008US019N-2

PATIENT
  Age: 53 Year
  Sex: Female

DRUGS (3)
  1. SALONPAS [Suspect]
     Indication: PAIN IN EXTREMITY
     Dosage: 2DF TRANSDERMAL
     Route: 062
     Dates: start: 20080611
  2. PROMETHAZINE [Concomitant]
  3. ANTIBIOTICS [Concomitant]

REACTIONS (9)
  - APPLICATION SITE IRRITATION [None]
  - APPLICATION SITE VESICLES [None]
  - BULLOUS IMPETIGO [None]
  - CAUSTIC INJURY [None]
  - CELLULITIS [None]
  - DEEP VEIN THROMBOSIS [None]
  - DRUG HYPERSENSITIVITY [None]
  - OEDEMA PERIPHERAL [None]
  - TENDERNESS [None]
